FAERS Safety Report 20625293 (Version 2)
Quarter: 2022Q2

REPORT INFORMATION
  Report Type: Other
  Country: US (occurrence: None)
  Receive Date: 20220323
  Receipt Date: 20220427
  Transmission Date: 20220721
  Serious: Yes (Hospitalization)
  Sender: FDA-Public Use
  Company Number: US-ROCHE-3056063

PATIENT
  Sex: Female

DRUGS (23)
  1. ESBRIET [Suspect]
     Active Substance: PIRFENIDONE
     Indication: Pulmonary fibrosis
     Dosage: DAY 1 THROUGH 7: 1 TABLET BY MOUTH THREE TIMES A DAY WITH MEALS DAY 8 THROUGH 14: 2 TABLETS BY MOUTH
     Route: 048
     Dates: start: 202202
  2. ESBRIET [Suspect]
     Active Substance: PIRFENIDONE
     Indication: Idiopathic pulmonary fibrosis
     Route: 048
     Dates: start: 20220411
  3. ATENOLOL [Concomitant]
     Active Substance: ATENOLOL
  4. ATORVASTATIN CALCIUM [Concomitant]
     Active Substance: ATORVASTATIN CALCIUM
     Route: 048
  5. CVS ASPIRIN [Concomitant]
     Active Substance: ASPIRIN
     Route: 048
  6. ESTRADIOL [Concomitant]
     Active Substance: ESTRADIOL
     Route: 048
  7. ACETAMINOPHEN [Concomitant]
     Active Substance: ACETAMINOPHEN
     Route: 048
  8. FAMOTIDINE [Concomitant]
     Active Substance: FAMOTIDINE
     Route: 048
  9. FLUTICASONE PROPIONATE [Concomitant]
     Active Substance: FLUTICASONE PROPIONATE
  10. FUROSEMIDE [Concomitant]
     Active Substance: FUROSEMIDE
     Route: 048
  11. LEVOTHYROXINE SODIUM [Concomitant]
     Active Substance: LEVOTHYROXINE SODIUM
     Route: 048
  12. LISINOPRIL [Concomitant]
     Active Substance: LISINOPRIL
     Route: 048
  13. MAGNESIUM OXIDE [Concomitant]
     Active Substance: MAGNESIUM OXIDE
     Route: 048
  14. ONDANSETRON [Concomitant]
     Active Substance: ONDANSETRON
     Route: 048
  15. SERTRALINE HYDROCHLORIDE [Concomitant]
     Active Substance: SERTRALINE HYDROCHLORIDE
     Route: 048
  16. VITAMIN D3 [Concomitant]
     Active Substance: CHOLECALCIFEROL
     Route: 048
  17. AZITHROMYCIN [Concomitant]
     Active Substance: AZITHROMYCIN
  18. KLOR-CON [Concomitant]
     Active Substance: POTASSIUM CHLORIDE
     Route: 048
  19. LISINOPRIL [Concomitant]
     Active Substance: LISINOPRIL
     Route: 048
  20. LOSARTAN POTASSIUM [Concomitant]
     Active Substance: LOSARTAN POTASSIUM
     Route: 048
  21. OFEV [Concomitant]
     Active Substance: NINTEDANIB
     Route: 048
  22. POTASSIUM CHLORIDE [Concomitant]
     Active Substance: POTASSIUM CHLORIDE
     Route: 048
  23. SINGULAIR [Concomitant]
     Active Substance: MONTELUKAST SODIUM
     Route: 048

REACTIONS (3)
  - Hypertension [Unknown]
  - Gastrooesophageal reflux disease [Unknown]
  - Epistaxis [Unknown]
